FAERS Safety Report 24644066 (Version 2)
Quarter: 2024Q4

REPORT INFORMATION
  Report Type: Spontaneous
  Country: US (occurrence: US)
  Receive Date: 20241120
  Receipt Date: 20241127
  Transmission Date: 20250115
  Serious: No
  Sender: BIOGEN
  Company Number: US-BIOGEN-2024BI01290297

PATIENT
  Age: 32 Year
  Sex: Female

DRUGS (3)
  1. ZURZUVAE [Suspect]
     Active Substance: ZURANOLONE
     Indication: Perinatal depression
     Route: 050
     Dates: start: 20241111, end: 20241116
  2. KEPPRA [Concomitant]
     Active Substance: LEVETIRACETAM
     Indication: Product used for unknown indication
     Route: 050
  3. LAMICTAL [Concomitant]
     Active Substance: LAMOTRIGINE
     Indication: Product used for unknown indication
     Route: 050

REACTIONS (12)
  - Affect lability [Unknown]
  - Crying [Unknown]
  - Panic attack [Unknown]
  - Therapeutic product effect delayed [Unknown]
  - Vomiting [Unknown]
  - Stress [Unknown]
  - Dizziness [Recovered/Resolved]
  - Hypersomnia [Unknown]
  - Gait disturbance [Recovered/Resolved]
  - Anxiety [Unknown]
  - Decreased appetite [Unknown]
  - Asthenia [Unknown]

NARRATIVE: CASE EVENT DATE: 20241111
